FAERS Safety Report 9822622 (Version 1)
Quarter: 2014Q1

REPORT INFORMATION
  Report Type: Spontaneous
  Country: BR (occurrence: BR)
  Receive Date: 20140116
  Receipt Date: 20140116
  Transmission Date: 20141002
  Serious: Yes (Hospitalization)
  Sender: FDA-Public Use
  Company Number: BR-BIOGENIDEC-2014BI003576

PATIENT
  Age: 56 Year
  Sex: Male

DRUGS (7)
  1. TYSABRI [Suspect]
     Indication: MULTIPLE SCLEROSIS
     Route: 042
     Dates: start: 20130620
  2. SORASEQ [Concomitant]
  3. CHLORPROMAZINE [Concomitant]
  4. VALPROIC ACID [Concomitant]
  5. CLONAZEPAM [Concomitant]
  6. OLANZAPINE [Concomitant]
     Indication: BIPOLAR DISORDER
  7. VITAMIN D [Concomitant]

REACTIONS (9)
  - Multiple sclerosis relapse [Recovered/Resolved]
  - Sepsis [Recovered/Resolved]
  - Bipolar disorder [Unknown]
  - Neurogenic bladder [Not Recovered/Not Resolved]
  - Musculoskeletal stiffness [Not Recovered/Not Resolved]
  - Cognitive disorder [Unknown]
  - Amnesia [Unknown]
  - Asthenia [Unknown]
  - Functional gastrointestinal disorder [Unknown]
